FAERS Safety Report 8316781-0 (Version None)
Quarter: 2012Q2

REPORT INFORMATION
  Report Type: 
  Country: None (occurrence: None)
  Receive Date: 20120425
  Receipt Date: 20120413
  Transmission Date: 20120825
  Serious: Yes (Death, Congenital Anomaly)
  Sender: FDA-Public Use
  Company Number: ADR-5035-053

PATIENT

DRUGS (5)
  1. LOPINAVIR+RITONAVIR (KALETRA, ALUVIA,LPV/R) [Concomitant]
  2. ATAZANAVIR SULFATE (REYATAZ,ATV) [Concomitant]
  3. LAMIVUDINE+ZIDOVUDINE (COMBIVIR,ZDV+3ATC) [Concomitant]
  4. RALTEGRAVIR (ISENTRESS,RAL) [Concomitant]
  5. TENOFOVIR DISOPROXIL FUMARATE [Suspect]
     Indication: ACQUIRED IMMUNODEFICIENCY SYNDROME
     Dosage: 1 COURSE, ORAL
     Route: 048
     Dates: end: 20111001

REACTIONS (3)
  - ABORTION INDUCED [None]
  - MATERNAL EXPOSURE DURING PREGNANCY [None]
  - TRISOMY 21 [None]
